FAERS Safety Report 17339992 (Version 3)
Quarter: 2020Q1

REPORT INFORMATION
  Report Type: Spontaneous
  Country: GB (occurrence: GB)
  Receive Date: 20200129
  Receipt Date: 20200213
  Transmission Date: 20200409
  Serious: Yes (Other)
  Sender: FDA-Public Use
  Company Number: GB-PFIZER INC-2020031617

PATIENT
  Age: 32 Year
  Sex: Male

DRUGS (3)
  1. PARACETAMOL [Suspect]
     Active Substance: ACETAMINOPHEN
     Dosage: TOGETHER WITH 4-5 PINTS OF ALCOHOL
  2. IBUPROFEN. [Suspect]
     Active Substance: IBUPROFEN
     Dosage: TABLETS; TOGETHER WITH 4-5 PINTS OF ALCOHOL
  3. CETIRIZINE HYDROCHLORIDE. [Suspect]
     Active Substance: CETIRIZINE HYDROCHLORIDE
     Dosage: TOGETHER WITH 4-5 PINTS OF ALCOHOL

REACTIONS (4)
  - Overdose [Unknown]
  - Suicide attempt [Unknown]
  - Intentional overdose [Unknown]
  - Prescription drug used without a prescription [Unknown]
